FAERS Safety Report 14664664 (Version 1)
Quarter: 2018Q1

REPORT INFORMATION
  Report Type: Spontaneous
  Country: IT (occurrence: IT)
  Receive Date: 20180321
  Receipt Date: 20180321
  Transmission Date: 20180509
  Serious: Yes (Other)
  Sender: FDA-Public Use
  Company Number: IT-ASTRAZENECA-2018SE33092

PATIENT
  Age: 28723 Day
  Sex: Female

DRUGS (12)
  1. LANSOX [Concomitant]
     Active Substance: LANSOPRAZOLE
  2. OXYCONTIN [Concomitant]
     Active Substance: OXYCODONE HYDROCHLORIDE
  3. CARDIOASPIRIN [Concomitant]
     Active Substance: ASPIRIN
  4. LORAZEPAM. [Concomitant]
     Active Substance: LORAZEPAM
  5. NOVONORM [Concomitant]
     Active Substance: REPAGLINIDE
  6. IBRANCE [Suspect]
     Active Substance: PALBOCICLIB
     Indication: BREAST CANCER METASTATIC
     Dosage: 125.0MG UNKNOWN
     Route: 048
     Dates: start: 20170529
  7. CYMBALTA [Concomitant]
     Active Substance: DULOXETINE HYDROCHLORIDE
  8. TRITTICO [Concomitant]
     Active Substance: TRAZODONE HYDROCHLORIDE
  9. FULVESTRANT. [Suspect]
     Active Substance: FULVESTRANT
     Dosage: 5 CYCLES
     Route: 030
     Dates: start: 20170529
  10. TOTALIP [Concomitant]
     Active Substance: ATORVASTATIN
  11. GABAPENTIN. [Concomitant]
     Active Substance: GABAPENTIN
  12. DIBASE [Concomitant]
     Active Substance: CHOLECALCIFEROL

REACTIONS (2)
  - Malignant neoplasm progression [Unknown]
  - Metastases to kidney [Unknown]

NARRATIVE: CASE EVENT DATE: 20170925
